FAERS Safety Report 16494613 (Version 1)
Quarter: 2019Q2

REPORT INFORMATION
  Report Type: Spontaneous
  Country: US (occurrence: US)
  Receive Date: 20190628
  Receipt Date: 20190628
  Transmission Date: 20190711
  Serious: Yes (Hospitalization, Other)
  Sender: FDA-Public Use
  Company Number: US-AUROBINDO-AUR-APL-2019-035958

PATIENT

DRUGS (1)
  1. CLOZAPINE. [Suspect]
     Active Substance: CLOZAPINE
     Indication: MOLLUSCUM CONTAGIOSUM
     Dosage: 200 MILLIGRAM, 1 TOTAL (TABLET, SHE TOOK HER FIRST EVENING DOS)
     Route: 048

REACTIONS (11)
  - Dyskinesia [Recovered/Resolved]
  - Product dispensing error [Recovered/Resolved]
  - Toxicity to various agents [Recovered/Resolved]
  - Eye movement disorder [Recovered/Resolved]
  - Agitation [Recovered/Resolved]
  - Tachycardia [Recovered/Resolved]
  - Accidental exposure to product [Recovered/Resolved]
  - Mental status changes [Recovered/Resolved]
  - Confusional state [Recovered/Resolved]
  - Lethargy [Recovered/Resolved]
  - Drooling [Recovered/Resolved]
